FAERS Safety Report 8993613 (Version 1)
Quarter: 2013Q1

REPORT INFORMATION
  Report Type: Spontaneous
  Country: DE (occurrence: DE)
  Receive Date: 20130102
  Receipt Date: 20130102
  Transmission Date: 20140127
  Serious: Yes (Other)
  Sender: FDA-Public Use
  Company Number: DE-BRISTOL-MYERS SQUIBB COMPANY-17246877

PATIENT
  Sex: 0

DRUGS (1)
  1. SUSTIVA [Suspect]

REACTIONS (1)
  - Gastrostomy [Unknown]
